FAERS Safety Report 4330141-9 (Version None)
Quarter: 2004Q2

REPORT INFORMATION
  Report Type: 
  Country: None (occurrence: None)
  Receive Date: 20040402
  Receipt Date: 20031013
  Transmission Date: 20050107
  Serious: Yes (Hospitalization)
  Sender: FDA-Public Use
  Company Number: PHRM2003FR02734

PATIENT
  Age: 41 Year
  Sex: Female
  Weight: 67 kg

DRUGS (4)
  1. FORLAX [Concomitant]
     Route: 048
     Dates: start: 20030910, end: 20030910
  2. DICETEL [Concomitant]
     Route: 048
     Dates: start: 20030910, end: 20030910
  3. SPAGULAX [Concomitant]
     Route: 065
     Dates: start: 20030910, end: 20030910
  4. PARLODEL [Suspect]
     Indication: PITUITARY TUMOUR BENIGN
     Dosage: 2.5 MG, QD
     Route: 048
     Dates: start: 19930707, end: 20030923

REACTIONS (11)
  - ABDOMINAL PAIN [None]
  - ASCITES [None]
  - COAGULOPATHY [None]
  - GASTROINTESTINAL NECROSIS [None]
  - GASTROINTESTINAL OEDEMA [None]
  - HAEMANGIOMA OF LIVER [None]
  - INTESTINAL INFARCTION [None]
  - INTESTINAL RESECTION [None]
  - ISCHAEMIA [None]
  - OVERDOSE [None]
  - RECTAL HAEMORRHAGE [None]
